FAERS Safety Report 18642107 (Version 1)
Quarter: 2020Q4

REPORT INFORMATION
  Report Type: Spontaneous
  Country: US (occurrence: US)
  Receive Date: 20201218
  Receipt Date: 20201218
  Transmission Date: 20210114
  Serious: Yes (Other)
  Sender: FDA-Public Use
  Company Number: None

PATIENT
  Age: 51 Year
  Sex: Male
  Weight: 102.7 kg

DRUGS (2)
  1. CISPLATIN. [Concomitant]
     Active Substance: CISPLATIN
     Dates: start: 20201118
  2. ETOPOSIDE. [Suspect]
     Active Substance: ETOPOSIDE

REACTIONS (8)
  - Infusion related reaction [None]
  - Erythema [None]
  - Flushing [None]
  - Hyperventilation [None]
  - Chills [None]
  - Lip swelling [None]
  - Heart rate increased [None]
  - Back pain [None]

NARRATIVE: CASE EVENT DATE: 20201209
